FAERS Safety Report 22324841 (Version 1)
Quarter: 2023Q2

REPORT INFORMATION
  Report Type: Spontaneous
  Country: IN (occurrence: IN)
  Receive Date: 20230516
  Receipt Date: 20230516
  Transmission Date: 20230722
  Serious: Yes (Death)
  Sender: FDA-Public Use
  Company Number: IN-PFIZER INC-2018240151

PATIENT
  Age: 57 Year
  Sex: Female

DRUGS (2)
  1. CRIZOTINIB [Suspect]
     Active Substance: CRIZOTINIB
     Indication: Lung neoplasm malignant
     Dosage: 250 MG, TWICE A DAY
     Route: 048
     Dates: start: 20170629, end: 20171120
  2. CRIZOTINIB [Suspect]
     Active Substance: CRIZOTINIB
     Dosage: 250 MG, ONCE A DAY
     Route: 048

REACTIONS (9)
  - Death [Fatal]
  - Asthenia [Recovering/Resolving]
  - Vomiting [Unknown]
  - Constipation [Unknown]
  - Heart rate increased [Unknown]
  - Neutrophil count decreased [Unknown]
  - White blood cell count decreased [Unknown]
  - Blood calcium decreased [Unknown]
  - Body mass index decreased [Unknown]

NARRATIVE: CASE EVENT DATE: 20170703
